FAERS Safety Report 8989812 (Version 5)
Quarter: 2013Q2

REPORT INFORMATION
  Report Type: Spontaneous
  Country: FR (occurrence: FR)
  Receive Date: 20121228
  Receipt Date: 20130422
  Transmission Date: 20140414
  Serious: Yes (Hospitalization, Other)
  Sender: FDA-Public Use
  Company Number: FR-VERTEX PHARMACEUTICALS INC.-2012-026690

PATIENT
  Age: 61 Year
  Sex: Male

DRUGS (6)
  1. INCIVO [Suspect]
     Indication: PRODUCT USED FOR UNKNOWN INDICATION
     Dosage: 2 DF, TID
     Route: 048
     Dates: start: 20121031, end: 20121220
  2. COPEGUS [Suspect]
     Indication: PRODUCT USED FOR UNKNOWN INDICATION
     Dosage: DOSAGE FORM: UNSPECIFIED
     Route: 048
     Dates: start: 20121031, end: 20121220
  3. PEGASYS [Suspect]
     Indication: PRODUCT USED FOR UNKNOWN INDICATION
     Dosage: DOSAGE FORM: SOLUTION FOR INJECTION
     Route: 058
     Dates: start: 20121031, end: 20121220
  4. LYRICA [Suspect]
     Indication: EPILEPSY
     Dosage: DOSAGE FORM: UNSPECIFIED
     Route: 048
  5. URBANYL [Concomitant]
     Indication: EPILEPSY
     Dosage: DOSAGE FORM: CAPSULE
     Route: 048
  6. LEVOTHYROX [Concomitant]
     Indication: HYPOTHYROIDISM
     Dosage: DOSAGE FORM: TABLET
     Route: 048

REACTIONS (8)
  - Respiratory disorder [Unknown]
  - Generalised oedema [Not Recovered/Not Resolved]
  - Pleurisy [Recovered/Resolved]
  - Ascites [Recovered/Resolved]
  - Oedema [Recovered/Resolved]
  - Drug reaction with eosinophilia and systemic symptoms [Recovered/Resolved]
  - Rash erythematous [Recovered/Resolved]
  - Urinary tract disorder [Unknown]
